FAERS Safety Report 5958348-5 (Version None)
Quarter: 2008Q4

REPORT INFORMATION
  Report Type: 
  Country: None (occurrence: None)
  Receive Date: 20081110
  Receipt Date: 20081012
  Transmission Date: 20090506
  Serious: Yes (Death)
  Sender: FDA-Public Use
  Company Number: CHPA2008US18061

PATIENT
  Age: 49 Year
  Sex: Male

DRUGS (9)
  1. ACETYLSALICYLIC ACID SRT [Suspect]
     Dosage: ORAL
     Route: 048
  2. VENLAFAXINE HCL [Suspect]
     Dosage: ORAL
     Route: 048
  3. GABAPENTIN [Suspect]
     Dosage: ORAL
     Route: 048
  4. AMLODIPINE [Suspect]
     Dosage: ORAL
     Route: 048
  5. DIAZEPAM [Suspect]
     Dosage: ORAL
     Route: 048
  6. IMIPRAMINE [Suspect]
     Dosage: ORAL
     Route: 048
  7. BETA BLOCKING AGENTS (NO INGREDIENTS/SUBSTANCES) [Suspect]
     Dosage: ORAL
     Route: 048
  8. LISINOPRIL [Suspect]
     Dosage: ORAL
     Route: 048
  9. HYDROCHLOROTHIAZIDE [Suspect]
     Dosage: ORAL
     Route: 048

REACTIONS (1)
  - COMPLETED SUICIDE [None]
